FAERS Safety Report 17530312 (Version 1)
Quarter: 2020Q1

REPORT INFORMATION
  Report Type: Spontaneous
  Country: GB (occurrence: GB)
  Receive Date: 20200312
  Receipt Date: 20200312
  Transmission Date: 20200409
  Serious: Yes (Other)
  Sender: FDA-Public Use
  Company Number: GB-TEVA-2020-GB-1197023

PATIENT
  Age: 87 Year
  Sex: Female
  Weight: 51.8 kg

DRUGS (7)
  1. MEMANTINE. [Suspect]
     Active Substance: MEMANTINE
     Dosage: 10 MILLIGRAM DAILY; NIGHT
     Dates: start: 20191206, end: 20200121
  2. AMITRIPTYLINE [Concomitant]
     Active Substance: AMITRIPTYLINE
     Dosage: TO HELP SLEEP; 10MG
     Dates: start: 20191215, end: 20200103
  3. FLUAD NOS [Concomitant]
     Active Substance: INFLUENZA VIRUS VACCINE
     Indication: DEMENTIA ALZHEIMER^S TYPE
     Dosage: AS DIRECTED; 0.5ML
     Dates: start: 20191105, end: 20191218
  4. RISPERIDONE. [Concomitant]
     Active Substance: RISPERIDONE
     Dosage: HALF TO BE TAKEN ONCE OR TWICE A DAY IF REQUIRED; 500MCG
     Dates: start: 20200115
  5. AMITRIPTYLINE [Concomitant]
     Active Substance: AMITRIPTYLINE
     Indication: SLEEP DISORDER
     Dosage: TO HELP SLEEP; 10MG
     Dates: start: 20191023, end: 20191121
  6. AMOXICILLIN. [Concomitant]
     Active Substance: AMOXICILLIN
     Dosage: 1500MG
     Dates: start: 20200108
  7. HALOPERIDOL. [Concomitant]
     Active Substance: HALOPERIDOL
     Indication: AGITATION
     Dosage: 500 MICROGRAM DAILY; IN THE AFTERNOON OR EVENING
     Dates: start: 20200103

REACTIONS (1)
  - Agitation [Unknown]
